FAERS Safety Report 6038663-X (Version None)
Quarter: 2009Q1

REPORT INFORMATION
  Report Type: 
  Country: None (occurrence: None)
  Receive Date: 20090115
  Receipt Date: 20080909
  Transmission Date: 20090719
  Serious: No
  Sender: FDA-Public Use
  Company Number: US-BAYER-200813705BCC

PATIENT
  Age: 82 Year
  Sex: Female
  Weight: 54 kg

DRUGS (13)
  1. ALEVE [Suspect]
     Indication: ARTHRALGIA
     Dosage: TOTAL DAILY DOSE: 440 MG  UNIT DOSE: 220 MG
     Route: 048
     Dates: start: 20080812
  2. VERAPAMIL [Concomitant]
  3. LADETAOL [Concomitant]
  4. TRIMENSIC HCTZ [Concomitant]
  5. PREMARIN [Concomitant]
  6. OSCAL [Concomitant]
  7. OSTEOBIFLEX [Concomitant]
  8. STRESS TAB [Concomitant]
  9. FIBERCON [Concomitant]
  10. DETROL [Concomitant]
  11. NORTOTYLINE [Concomitant]
  12. ASPIRIN [Concomitant]
  13. LEVOTHYROXINE SODIUM [Concomitant]

REACTIONS (1)
  - CONSTIPATION [None]
